FAERS Safety Report 17750649 (Version 1)
Quarter: 2020Q2

REPORT INFORMATION
  Report Type: Report from Study
  Country: ES (occurrence: ES)
  Receive Date: 20200506
  Receipt Date: 20200506
  Transmission Date: 20200714
  Serious: Yes (Death, Hospitalization, Other)
  Sender: FDA-Public Use
  Company Number: ES-ACCORD-180119

PATIENT
  Age: 72 Year
  Sex: Male

DRUGS (5)
  1. LOPINAVIR/RITONAVIR [Suspect]
     Active Substance: LOPINAVIR\RITONAVIR
     Indication: CORONAVIRUS INFECTION
     Dosage: (200/100 MG TWICE DAILY ORALLY FOR UP TO 14 DAYS)
     Route: 048
  2. INTERFERON BETA NOS [Concomitant]
     Active Substance: INTERFERON BETA
     Indication: CORONAVIRUS INFECTION
     Dosage: 250 MICROG EVERY 48 HOURS
     Route: 058
  3. HYDROXYCHLOROQUINE [Concomitant]
     Active Substance: HYDROXYCHLOROQUINE
     Indication: CORONAVIRUS INFECTION
     Dosage: 400 MG TWICE DAILY ORALLY FOR THE FIRST 24 HOURS, FOLLOWED BY 200 MG TWICE DAILY FOR 5-10 DAYS
     Route: 048
  4. MYCOPHENOLIC ACID. [Suspect]
     Active Substance: MYCOPHENOLIC ACID
     Indication: IMMUNOSUPPRESSION
  5. EVEROLIMUS. [Suspect]
     Active Substance: EVEROLIMUS
     Indication: IMMUNOSUPPRESSION

REACTIONS (2)
  - Coronavirus infection [Fatal]
  - Off label use [Unknown]
